FAERS Safety Report 8790325 (Version 4)
Quarter: 2013Q2

REPORT INFORMATION
  Report Type: Report from Study
  Country: JP (occurrence: JP)
  Receive Date: 20120917
  Receipt Date: 20130612
  Transmission Date: 20140414
  Serious: Yes (Other)
  Sender: FDA-Public Use
  Company Number: JP-GENZYME-THYM-1002863

PATIENT
  Age: 32 Year
  Sex: Female
  Weight: 57 kg

DRUGS (1)
  1. THYMOGLOBULIN [Suspect]
     Indication: APLASTIC ANAEMIA
     Dosage: 2.5 MG/KG, QD
     Route: 042
     Dates: start: 20111021, end: 20111025

REACTIONS (21)
  - Retinal haemorrhage [Unknown]
  - Petechiae [Recovered/Resolved]
  - Oral discomfort [Recovered/Resolved]
  - Somnolence [Recovered/Resolved]
  - Erythema [Recovered/Resolved]
  - Cough [Recovered/Resolved]
  - Stomatitis [Recovered/Resolved]
  - Cheilitis [Recovered/Resolved]
  - Decreased appetite [Recovered/Resolved]
  - Palmar erythema [Not Recovered/Not Resolved]
  - Rhinorrhoea [Recovered/Resolved]
  - Pruritus [Not Recovered/Not Resolved]
  - Pruritus [Recovered/Resolved]
  - Gingivitis [Recovered/Resolved]
  - Rash [Recovered/Resolved]
  - Oedema peripheral [Recovered/Resolved]
  - Pyrexia [Recovered/Resolved]
  - Malaise [Recovered/Resolved]
  - Oedema peripheral [Recovered/Resolved]
  - Pyrexia [Recovered/Resolved]
  - Influenza [Recovered/Resolved]
